FAERS Safety Report 25667334 (Version 2)
Quarter: 2025Q3

REPORT INFORMATION
  Report Type: Spontaneous
  Country: JP (occurrence: JP)
  Receive Date: 20250811
  Receipt Date: 20250903
  Transmission Date: 20251020
  Serious: Yes (Other)
  Sender: PFIZER
  Company Number: JP-PFIZER INC-202500160445

PATIENT
  Age: 84 Year
  Sex: Female
  Weight: 41.2 kg

DRUGS (1)
  1. VFEND [Suspect]
     Active Substance: VORICONAZOLE
     Indication: Bronchopulmonary aspergillosis
     Dosage: 100 MG, 2X/DAY
     Route: 048
     Dates: start: 20250808, end: 20250821

REACTIONS (2)
  - Condition aggravated [Unknown]
  - Off label use [Unknown]
